FAERS Safety Report 10956616 (Version 1)
Quarter: 2015Q1

REPORT INFORMATION
  Report Type: Spontaneous
  Country: US (occurrence: None)
  Receive Date: 20150325
  Receipt Date: 20150325
  Transmission Date: 20150721
  Serious: Yes (Other)
  Sender: FDA-Public Use
  Company Number: None

PATIENT
  Age: 12 Day
  Sex: Female
  Weight: 68.04 kg

DRUGS (1)
  1. BUTRANS [Suspect]
     Active Substance: BUPRENORPHINE
     Indication: PAIN
     Dosage: ONE PATCH, APPLIED AS MEDICATED PATCH TO SKIN
     Dates: start: 20150313, end: 20150324

REACTIONS (4)
  - Application site irritation [None]
  - Application site pruritus [None]
  - Application site exfoliation [None]
  - Application site erythema [None]

NARRATIVE: CASE EVENT DATE: 20150319
